FAERS Safety Report 8827931 (Version 1)
Quarter: 2012Q4

REPORT INFORMATION
  Report Type: Report from Study
  Country: ES (occurrence: ES)
  Receive Date: 20121008
  Receipt Date: 20121008
  Transmission Date: 20130627
  Serious: Yes (Other)
  Sender: FDA-Public Use
  Company Number: ES-JNJFOC-20121002307

PATIENT
  Age: 54 Year
  Sex: Female
  Weight: 81 kg

DRUGS (1)
  1. REMICADE [Suspect]
     Indication: ANKYLOSING SPONDYLITIS
     Route: 042
     Dates: start: 20050418

REACTIONS (1)
  - Bronchopulmonary aspergillosis [Recovered/Resolved]
